FAERS Safety Report 24839090 (Version 1)
Quarter: 2025Q1

REPORT INFORMATION
  Report Type: Spontaneous
  Country: US (occurrence: US)
  Receive Date: 20250114
  Receipt Date: 20250114
  Transmission Date: 20250409
  Serious: No
  Sender: MERCK
  Company Number: US-009507513-2412USA009614

PATIENT
  Sex: Male
  Weight: 63 kg

DRUGS (7)
  1. WINREVAIR [Suspect]
     Active Substance: SOTATERCEPT-CSRK
     Indication: Product used for unknown indication
  2. REMODULIN [Suspect]
     Active Substance: TREPROSTINIL
     Indication: Pulmonary arterial hypertension
     Route: 058
     Dates: start: 20201113
  3. ADEMPAS [Concomitant]
     Active Substance: RIOCIGUAT
  4. LASIX [Concomitant]
     Active Substance: FUROSEMIDE
  5. OPSUMIT [Concomitant]
     Active Substance: MACITENTAN
  6. MIRALAX [Concomitant]
     Active Substance: POLYETHYLENE GLYCOL 3350
  7. ZYRTEC [Concomitant]
     Active Substance: CETIRIZINE HYDROCHLORIDE

REACTIONS (2)
  - Epistaxis [Unknown]
  - Product administered to patient of inappropriate age [Unknown]
